FAERS Safety Report 5854173-4 (Version None)
Quarter: 2008Q3

REPORT INFORMATION
  Report Type: 
  Country: None (occurrence: None)
  Receive Date: 20080822
  Receipt Date: 20080815
  Transmission Date: 20090109
  Serious: Yes (Other)
  Sender: FDA-Public Use
  Company Number: US-JNJCH-2008021444

PATIENT
  Age: 30 Year
  Sex: Male
  Weight: 83.9 kg

DRUGS (2)
  1. ZYRTEC [Suspect]
     Indication: SEASONAL ALLERGY
     Dosage: TEXT:ONE ONCE DAY
     Route: 048
     Dates: start: 20080801, end: 20080804
  2. PRILOSEC [Concomitant]
     Indication: DYSPEPSIA
     Dosage: TEXT:10 MG TWICE DAILY
     Route: 065

REACTIONS (1)
  - HEART RATE INCREASED [None]
